FAERS Safety Report 24525944 (Version 1)
Quarter: 2024Q4

REPORT INFORMATION
  Report Type: Report from Study
  Country: NL (occurrence: NL)
  Receive Date: 20241020
  Receipt Date: 20241020
  Transmission Date: 20250114
  Serious: Yes (Other)
  Sender: ABBVIE
  Company Number: NL-ABBVIE-5828547

PATIENT
  Sex: Male

DRUGS (9)
  1. CARBIDOPA\LEVODOPA [Suspect]
     Active Substance: CARBIDOPA\LEVODOPA
     Indication: Parkinson^s disease
     Dosage: MD:7.0ML; CD:3.2ML/H; ED:1.60ML
     Route: 050
     Dates: start: 20241014
  2. CARBIDOPA\LEVODOPA [Suspect]
     Active Substance: CARBIDOPA\LEVODOPA
     Dosage: REMAINS AT 16 HOURS
     Route: 050
     Dates: start: 20190509
  3. CARBIDOPA\LEVODOPA [Suspect]
     Active Substance: CARBIDOPA\LEVODOPA
     Dosage: MD:8.0ML; CD:3.2ML/H; ED:1.80ML?REMAINS AT 16 HOURS
     Route: 050
     Dates: start: 20240627, end: 20241014
  4. CARBIDOPA\LEVODOPA [Suspect]
     Active Substance: CARBIDOPA\LEVODOPA
     Dosage: MD:6.7ML; CD:2.8ML/H; ED:1.00ML?REMAINS AT 16 HOURS
     Route: 050
     Dates: start: 20240123, end: 20240627
  5. BENSERAZIDE HYDROCHLORIDE\LEVODOPA [Concomitant]
     Active Substance: BENSERAZIDE HYDROCHLORIDE\LEVODOPA
     Indication: Parkinson^s disease
  6. SYMMETREL [Concomitant]
     Active Substance: AMANTADINE HYDROCHLORIDE
     Indication: Parkinson^s disease
     Dosage: FORM STRENGTH: 100 MILLIGRAM
  7. SINEMET [Concomitant]
     Active Substance: CARBIDOPA\LEVODOPA
     Indication: Parkinson^s disease
     Dosage: SINEMET CR?FORM STRENGTH: 125 MILLIGRAM?ONE AFTER DISCONNECTING PUMP AT 10:00 PM
     Route: 048
  8. REQUIP [Concomitant]
     Active Substance: ROPINIROLE HYDROCHLORIDE
     Indication: Parkinson^s disease
     Dosage: FORM STRENGTH: 8 MILLIGRAM
     Route: 048
  9. REQUIP [Concomitant]
     Active Substance: ROPINIROLE HYDROCHLORIDE
     Indication: Parkinson^s disease
     Route: 048

REACTIONS (13)
  - Myocardial infarction [Recovered/Resolved]
  - Tremor [Not Recovered/Not Resolved]
  - Tension [Not Recovered/Not Resolved]
  - Dyskinesia [Not Recovered/Not Resolved]
  - Stress [Not Recovered/Not Resolved]
  - Weight decreased [Not Recovered/Not Resolved]
  - Abnormal dreams [Recovering/Resolving]
  - Bradykinesia [Not Recovered/Not Resolved]
  - Muscular weakness [Not Recovered/Not Resolved]
  - Rehabilitation therapy [Not Recovered/Not Resolved]
  - Mental impairment [Not Recovered/Not Resolved]
  - On and off phenomenon [Not Recovered/Not Resolved]
  - Fatigue [Not Recovered/Not Resolved]

NARRATIVE: CASE EVENT DATE: 20240101
